FAERS Safety Report 6471743-3 (Version None)
Quarter: 2009Q4

REPORT INFORMATION
  Report Type: 
  Country: None (occurrence: None)
  Receive Date: 20091203
  Receipt Date: 20080808
  Transmission Date: 20100525
  Serious: Yes (Hospitalization, Other)
  Sender: FDA-Public Use
  Company Number: US-ELI_LILLY_AND_COMPANY-US200803006294

PATIENT
  Sex: Male

DRUGS (10)
  1. HUMALOG [Suspect]
  2. HUMULIN N [Suspect]
     Dosage: UNK, UNK
  3. NOVOLOG [Concomitant]
  4. LANTUS [Concomitant]
  5. PRAVASTATIN [Concomitant]
  6. PRILOSEC [Concomitant]
  7. TIAZAC [Concomitant]
  8. ISOSORBIDE [Concomitant]
  9. ASPIRIN [Concomitant]
  10. PLAVIX [Concomitant]

REACTIONS (5)
  - CORONARY ARTERY DISEASE [None]
  - MYOCARDIAL INFARCTION [None]
  - NEPHROLITHIASIS [None]
  - PAIN [None]
  - VASCULAR GRAFT OCCLUSION [None]
